FAERS Safety Report 8562213-7 (Version None)
Quarter: 2012Q3

REPORT INFORMATION
  Report Type: 
  Country: None (occurrence: None)
  Receive Date: 20120802
  Receipt Date: 20120711
  Transmission Date: 20120928
  Serious: No
  Sender: FDA-Public Use
  Company Number: US-AMGEN-USASP2012043056

PATIENT
  Age: 49 Year
  Sex: Male

DRUGS (3)
  1. ENBREL [Suspect]
     Indication: PSORIATIC ARTHROPATHY
  2. ENBREL [Suspect]
     Indication: PSORIASIS
     Dosage: 50 MG, QWK
     Dates: start: 20021220
  3. TREXALL [Concomitant]
     Dosage: 5 PILLS EVERY WEEK

REACTIONS (7)
  - PSORIATIC ARTHROPATHY [None]
  - SINUSITIS [None]
  - LIPOMA [None]
  - IRRITABILITY [None]
  - NASOPHARYNGITIS [None]
  - PSORIASIS [None]
  - INFLUENZA [None]
